FAERS Safety Report 4613852-7 (Version None)
Quarter: 2005Q1

REPORT INFORMATION
  Report Type: 
  Country: None (occurrence: None)
  Receive Date: 20050321
  Receipt Date: 20030909
  Transmission Date: 20050727
  Serious: Yes (Disabling)
  Sender: FDA-Public Use
  Company Number: JP-BRISTOL-MYERS SQUIBB COMPANY-12378493

PATIENT
  Age: 58 Year
  Sex: Male

DRUGS (5)
  1. BRIPLATIN [Suspect]
     Indication: OROPHARYNGEAL CANCER STAGE UNSPECIFIED
     Route: 041
     Dates: start: 20030818, end: 20030818
  2. FLUOROURACIL [Suspect]
     Indication: OROPHARYNGEAL CANCER STAGE UNSPECIFIED
     Route: 041
     Dates: start: 20030818, end: 20030822
  3. FAMOTIDINE [Concomitant]
     Route: 041
     Dates: start: 20030818, end: 20030818
  4. SOLU-MEDROL [Concomitant]
     Route: 041
     Dates: start: 20030818, end: 20030818
  5. ZOFRAN [Concomitant]
     Route: 041
     Dates: start: 20030818, end: 20030818

REACTIONS (2)
  - DEPRESSED LEVEL OF CONSCIOUSNESS [None]
  - RENAL IMPAIRMENT [None]
